FAERS Safety Report 20936523 (Version 5)
Quarter: 2022Q3

REPORT INFORMATION
  Report Type: Spontaneous
  Country: US (occurrence: US)
  Receive Date: 20220609
  Receipt Date: 20220815
  Transmission Date: 20221027
  Serious: Yes (Life-Threatening, Hospitalization)
  Sender: FDA-Public Use
  Company Number: US-BAUSCH-BL-2022-014353

PATIENT
  Age: 20 Year
  Sex: Female
  Weight: 63.106 kg

DRUGS (11)
  1. WELLBUTRIN XL [Suspect]
     Active Substance: BUPROPION HYDROCHLORIDE
     Indication: Depression
     Dosage: 300 MILLIGRAM UPTO 450 MILLIGRAM FROM 2017 TILL MID 2019
     Route: 065
     Dates: start: 2017
  2. ATIVAN [Suspect]
     Active Substance: LORAZEPAM
     Indication: Panic attack
     Dosage: AS NEEDED
     Route: 065
  3. ATIVAN [Suspect]
     Active Substance: LORAZEPAM
     Indication: Anxiety
     Dosage: AS NEEDED
     Route: 065
  4. LEXAPRO [Suspect]
     Active Substance: ESCITALOPRAM OXALATE
     Indication: Product used for unknown indication
     Route: 065
  5. LEXAPRO [Suspect]
     Active Substance: ESCITALOPRAM OXALATE
     Route: 048
  6. EFFEXOR XR [Suspect]
     Active Substance: VENLAFAXINE HYDROCHLORIDE
     Indication: Product used for unknown indication
     Route: 065
  7. LAMOTRIGINE [Suspect]
     Active Substance: LAMOTRIGINE
     Indication: Product used for unknown indication
     Route: 065
  8. LAMOTRIGINE [Suspect]
     Active Substance: LAMOTRIGINE
     Route: 048
  9. LAMOTRIGINE [Suspect]
     Active Substance: LAMOTRIGINE
     Dosage: 3 WEEK
     Route: 065
  10. TRINTELLIX [Suspect]
     Active Substance: VORTIOXETINE HYDROBROMIDE
     Indication: Product used for unknown indication
     Dosage: 1 WEEK THEN INCREASE TO 10 MG Q DAY
     Route: 065
  11. ZOFRAN [Concomitant]
     Active Substance: ONDANSETRON HYDROCHLORIDE
     Indication: Product used for unknown indication

REACTIONS (14)
  - Skull fracture [Unknown]
  - Cardiac arrest [Unknown]
  - Long QT syndrome [Unknown]
  - Hyperhidrosis [Recovered/Resolved]
  - Colloid brain cyst [Unknown]
  - Haematoma [Recovering/Resolving]
  - Fatigue [Unknown]
  - Weight increased [Recovering/Resolving]
  - Hypersomnia [Unknown]
  - Contusion [Recovered/Resolved]
  - Rash [Unknown]
  - Nausea [Recovered/Resolved]
  - Vomiting [Unknown]
  - Therapeutic product effect decreased [Unknown]

NARRATIVE: CASE EVENT DATE: 20170101
